FAERS Safety Report 16891119 (Version 1)
Quarter: 2019Q4

REPORT INFORMATION
  Report Type: Spontaneous
  Country: GR (occurrence: GR)
  Receive Date: 20191007
  Receipt Date: 20191007
  Transmission Date: 20200122
  Serious: Yes (Hospitalization, Other)
  Sender: FDA-Public Use
  Company Number: GR-MYLANLABS-2019M1042724

PATIENT
  Age: 68 Year
  Sex: Female

DRUGS (2)
  1. IBANDRONIC ACID MYLAN [Suspect]
     Active Substance: IBANDRONIC ACID
     Indication: OSTEOPOROSIS
     Dosage: UNK
  2. ZOLEDRONIC ACID [Suspect]
     Active Substance: ZOLEDRONIC ACID
     Indication: PRODUCT USED FOR UNKNOWN INDICATION
     Dosage: UNK

REACTIONS (4)
  - Atypical femur fracture [Recovered/Resolved]
  - Femur fracture [Unknown]
  - Osteoporotic fracture [Recovered/Resolved]
  - Fracture [Unknown]
